FAERS Safety Report 9335027 (Version 1)
Quarter: 2013Q2

REPORT INFORMATION
  Report Type: Spontaneous
  Country: TR (occurrence: TR)
  Receive Date: 20130606
  Receipt Date: 20130606
  Transmission Date: 20140414
  Serious: Yes (Other)
  Sender: FDA-Public Use
  Company Number: PHHY2013TR055895

PATIENT
  Age: 59 Year
  Sex: Female

DRUGS (3)
  1. QUETIAPINE [Suspect]
     Indication: DEMENTIA
     Dosage: 100 MG, QD
  2. QUETIAPINE [Suspect]
     Indication: PSYCHOTIC DISORDER
  3. MEMANTINE [Concomitant]
     Indication: DEMENTIA
     Dosage: 10 MG, QD

REACTIONS (2)
  - Floppy iris syndrome [Recovered/Resolved]
  - Miosis [Recovered/Resolved]
